FAERS Safety Report 12520847 (Version 1)
Quarter: 2016Q3

REPORT INFORMATION
  Report Type: Spontaneous
  Country: US (occurrence: US)
  Receive Date: 20160701
  Receipt Date: 20160701
  Transmission Date: 20161109
  Serious: No
  Sender: FDA-Public Use
  Company Number: US-PFIZER INC-2016258840

PATIENT
  Age: 62 Year
  Sex: Male
  Weight: 83 kg

DRUGS (1)
  1. METHOTREXATE SODIUM. [Suspect]
     Active Substance: METHOTREXATE SODIUM
     Indication: RHEUMATOID ARTHRITIS
     Dosage: 20 MG, WEEKLY (2.5MG EIGHT TABLETS BY MOUTH ONCE A WEEK)
     Route: 048

REACTIONS (1)
  - No adverse event [Unknown]
